FAERS Safety Report 9444041 (Version 1)
Quarter: 2013Q3

REPORT INFORMATION
  Report Type: Spontaneous
  Country: US (occurrence: None)
  Receive Date: 20130806
  Receipt Date: 20130806
  Transmission Date: 20140515
  Serious: Yes (Death, Hospitalization)
  Sender: FDA-Public Use
  Company Number: None

PATIENT
  Age: 43 Year
  Sex: Male
  Weight: 90.72 kg

DRUGS (2)
  1. LATUDA [Suspect]
     Indication: SCHIZOAFFECTIVE DISORDER
     Dates: start: 20130328, end: 20130401
  2. LATUDA [Suspect]
     Indication: POST-TRAUMATIC STRESS DISORDER
     Dates: start: 20130328, end: 20130401

REACTIONS (3)
  - Neuroleptic malignant syndrome [None]
  - Loss of consciousness [None]
  - Multi-organ failure [None]
